FAERS Safety Report 23717413 (Version 1)
Quarter: 2024Q2

REPORT INFORMATION
  Report Type: Spontaneous
  Country: US (occurrence: None)
  Receive Date: 20240405
  Receipt Date: 20240405
  Transmission Date: 20240716
  Serious: Yes (Death)
  Sender: FDA-Public Use
  Company Number: None

PATIENT
  Age: 77 Year
  Sex: Male
  Weight: 80.9 kg

DRUGS (1)
  1. EPCLUSA [Suspect]
     Active Substance: SOFOSBUVIR\VELPATASVIR
     Indication: HIV infection
     Dosage: 400 MG DAILY ORAL
     Route: 048
     Dates: start: 20231026

REACTIONS (1)
  - Death [None]

NARRATIVE: CASE EVENT DATE: 20240403
